FAERS Safety Report 11720112 (Version 1)
Quarter: 2015Q4

REPORT INFORMATION
  Report Type: Spontaneous
  Country: DK (occurrence: DK)
  Receive Date: 20151110
  Receipt Date: 20151110
  Transmission Date: 20160304
  Serious: Yes (Life-Threatening, Hospitalization)
  Sender: FDA-Public Use
  Company Number: DK-FRESENIUS KABI-FK201505672

PATIENT
  Age: 82 Year
  Sex: Female

DRUGS (1)
  1. CEFUROXIME 750 MG [Suspect]
     Active Substance: CEFUROXIME
     Indication: PNEUMONIA
     Route: 042
     Dates: start: 20140926

REACTIONS (14)
  - Cardiac massage [Recovered/Resolved with Sequelae]
  - Gait disturbance [Not Recovered/Not Resolved]
  - Malaise [Recovered/Resolved]
  - Pain [Not Recovered/Not Resolved]
  - Renal impairment [Recovered/Resolved]
  - Anaphylactic shock [Recovered/Resolved with Sequelae]
  - Dyspnoea [Recovered/Resolved]
  - Acute respiratory failure [Recovered/Resolved with Sequelae]
  - Cardiac failure [Recovered/Resolved with Sequelae]
  - Procedural anxiety [Not Recovered/Not Resolved]
  - Life support [Recovered/Resolved with Sequelae]
  - Altered state of consciousness [Recovered/Resolved]
  - Memory impairment [Not Recovered/Not Resolved]
  - Dizziness [Not Recovered/Not Resolved]

NARRATIVE: CASE EVENT DATE: 2014
